FAERS Safety Report 5932438-5 (Version None)
Quarter: 2008Q4

REPORT INFORMATION
  Report Type: 
  Country: None (occurrence: None)
  Receive Date: 20081027
  Receipt Date: 20081027
  Transmission Date: 20090506
  Serious: Yes (Other)
  Sender: FDA-Public Use
  Company Number: None

PATIENT
  Age: 43 Year
  Sex: Female
  Weight: 55.3388 kg

DRUGS (3)
  1. ZOLOFT [Suspect]
     Indication: ANXIETY
     Dosage: ANY
  2. ZOLOFT [Suspect]
     Indication: DEPRESSION
     Dosage: ANY
  3. WELLBUTRIN [Suspect]
     Dosage: ANY

REACTIONS (8)
  - ANXIETY [None]
  - DIZZINESS [None]
  - DRUG EFFECT DECREASED [None]
  - HEADACHE [None]
  - ILL-DEFINED DISORDER [None]
  - PALPITATIONS [None]
  - PRODUCT QUALITY ISSUE [None]
  - THERAPEUTIC RESPONSE UNEXPECTED WITH DRUG SUBSTITUTION [None]
